FAERS Safety Report 16608361 (Version 2)
Quarter: 2019Q4

REPORT INFORMATION
  Report Type: Spontaneous
  Country: AU (occurrence: AU)
  Receive Date: 20190722
  Receipt Date: 20191120
  Transmission Date: 20200122
  Serious: Yes (Other)
  Sender: FDA-Public Use
  Company Number: AU-INCYTE CORPORATION-2019IN001952

PATIENT

DRUGS (4)
  1. JAKAVI [Suspect]
     Active Substance: RUXOLITINIB
     Dosage: 15 MG, UNK
     Route: 048
  2. JAKAVI [Suspect]
     Active Substance: RUXOLITINIB
     Indication: MYELOFIBROSIS
     Dosage: 20 MG, UNK
     Route: 048
  3. JAKAVI [Suspect]
     Active Substance: RUXOLITINIB
     Dosage: 25 MG, UNK
     Route: 048
  4. JAKAVI [Suspect]
     Active Substance: RUXOLITINIB
     Dosage: 5 MG, UNK
     Route: 048

REACTIONS (21)
  - Fall [Unknown]
  - Memory impairment [Unknown]
  - Portal hypertension [Unknown]
  - Anaemia [Recovering/Resolving]
  - Depression [Recovering/Resolving]
  - Diarrhoea [Unknown]
  - Mouth ulceration [Unknown]
  - Night sweats [Unknown]
  - Gastric varices [Unknown]
  - Burning sensation [Recovered/Resolved]
  - Palpitations [Unknown]
  - Arthralgia [Unknown]
  - Myelofibrosis [Unknown]
  - Skin papilloma [Unknown]
  - Weight increased [Unknown]
  - Pain in extremity [Recovered/Resolved]
  - Vomiting [Unknown]
  - Back pain [Unknown]
  - Nasopharyngitis [Unknown]
  - Dizziness [Unknown]
  - Headache [Unknown]

NARRATIVE: CASE EVENT DATE: 2014
